FAERS Safety Report 18798289 (Version 2)
Quarter: 2021Q2

REPORT INFORMATION
  Report Type: Report from Study
  Country: CA (occurrence: CA)
  Receive Date: 20210128
  Receipt Date: 20210624
  Transmission Date: 20210717
  Serious: Yes (Other)
  Sender: FDA-Public Use
  Company Number: CA-JNJFOC-20200226980

PATIENT
  Age: 14 Year
  Sex: Female

DRUGS (3)
  1. REMICADE [Suspect]
     Active Substance: INFLIXIMAB
     Indication: RHEUMATOID ARTHRITIS
     Route: 042
  2. REMICADE [Suspect]
     Active Substance: INFLIXIMAB
     Route: 042
  3. REMICADE [Suspect]
     Active Substance: INFLIXIMAB
     Indication: JUVENILE IDIOPATHIC ARTHRITIS
     Dosage: INFUSION RECEIVED ON 04?JAN?2021
     Route: 042

REACTIONS (4)
  - Post procedural infection [Unknown]
  - Post procedural haemorrhage [Unknown]
  - Tonsillitis [Unknown]
  - Anaemia [Unknown]

NARRATIVE: CASE EVENT DATE: 20200214
